FAERS Safety Report 5252154-5 (Version None)
Quarter: 2007Q1

REPORT INFORMATION
  Report Type: 
  Country: None (occurrence: None)
  Receive Date: 20070226
  Receipt Date: 20070220
  Transmission Date: 20070707
  Serious: Yes (Other)
  Sender: FDA-Public Use
  Company Number: 011010

PATIENT
  Sex: Female

DRUGS (3)
  1. MEDROXYPROGESTERONE ACETATE [Suspect]
     Dosage: ORAL
     Route: 048
     Dates: start: 19970101, end: 20040101
  2. PREMARIN [Suspect]
     Dosage: ORAL
     Route: 048
     Dates: start: 19970101, end: 20040101
  3. PREMPRO [Suspect]
     Dosage: ORAL
     Route: 048
     Dates: start: 19970101, end: 20040101

REACTIONS (1)
  - BREAST CANCER FEMALE [None]
